FAERS Safety Report 18847746 (Version 1)
Quarter: 2021Q1

REPORT INFORMATION
  Report Type: Spontaneous
  Country: FR (occurrence: FR)
  Receive Date: 20210204
  Receipt Date: 20210204
  Transmission Date: 20210419
  Serious: Yes (Hospitalization)
  Sender: FDA-Public Use
  Company Number: FR-UCBSA-2021004097

PATIENT
  Age: 15 Year
  Sex: Female

DRUGS (2)
  1. LAMICTAL [Concomitant]
     Active Substance: LAMOTRIGINE
     Indication: PRODUCT USED FOR UNKNOWN INDICATION
     Dosage: 400 MG A DAY
  2. KEPPRA [Suspect]
     Active Substance: LEVETIRACETAM
     Indication: PETIT MAL EPILEPSY
     Dosage: 250 MG A DAY
     Route: 048
     Dates: start: 20201222, end: 20210104

REACTIONS (7)
  - Behaviour disorder [Recovered/Resolved]
  - Underdose [Unknown]
  - Irritability [Recovered/Resolved]
  - Product use issue [Unknown]
  - Eczema [Recovered/Resolved]
  - Anxiety [Recovered/Resolved]
  - Tonic convulsion [Recovered/Resolved]

NARRATIVE: CASE EVENT DATE: 20201222
